FAERS Safety Report 5808408-4 (Version None)
Quarter: 2008Q3

REPORT INFORMATION
  Report Type: 
  Country: None (occurrence: None)
  Receive Date: 20080714
  Receipt Date: 20080708
  Transmission Date: 20090109
  Serious: Yes (Death, Hospitalization, Other)
  Sender: FDA-Public Use
  Company Number: PHFR2007GB02712

PATIENT
  Sex: Female

DRUGS (23)
  1. CLOZARIL [Suspect]
     Indication: SCHIZOPHRENIA
     Dosage: 300 MG/DAY
     Route: 048
     Dates: start: 19930310
  2. CLOZARIL [Suspect]
     Dosage: 75 MG/DAY
     Route: 048
     Dates: end: 20071101
  3. VALPROATE SODIUM [Concomitant]
     Indication: AFFECTIVE DISORDER
     Dosage: 500 MG, BID
     Route: 048
  4. METFORMIN [Concomitant]
     Indication: DIABETES MELLITUS
     Dosage: 850 MG/DAY
     Route: 048
  5. HYOSCINE [Concomitant]
     Indication: SALIVARY HYPERSECRETION
     Dosage: 300 UG/NOCTE
     Route: 048
  6. CYCLOSPORINE [Concomitant]
  7. HEPARIN [Concomitant]
     Indication: PROPHYLAXIS
     Dosage: 5000 U, BID
  8. PANCREX [Concomitant]
  9. ACETAMINOPHEN [Concomitant]
  10. LANSOPRAZOLE [Concomitant]
  11. FENTANYL [Concomitant]
     Dosage: EVERY THIRD DAY
     Route: 062
  12. IRBESARTAN [Concomitant]
     Dosage: 75 MG, BID
  13. RAMIPRIL [Concomitant]
     Dosage: 10MG/DAY
  14. ZOPICLONE [Concomitant]
     Dosage: 7.5 MG, QD
  15. FUROSEMIDE [Concomitant]
     Indication: OEDEMA
     Dosage: 80 AND 40 MG
  16. PIPERACILLIN AND TAZOBACTAM [Concomitant]
     Dosage: 4.5 G, TID
  17. CLOTRIMAZOLE [Concomitant]
     Route: 067
  18. DIAZEPAM [Concomitant]
     Dosage: 20MG
  19. HALOPERIDOL [Concomitant]
     Dosage: 9MG/DAY
  20. METRONIDAZOLE HCL [Concomitant]
     Dosage: 400 MG, TID
  21. SANDO K [Concomitant]
     Dosage: TWICE DAILY
  22. SPIRONOLACTONE [Concomitant]
  23. INSULIN [Concomitant]
     Indication: DIABETES MELLITUS

REACTIONS (33)
  - ABDOMINAL CAVITY DRAINAGE [None]
  - ABDOMINAL MASS [None]
  - ALANINE AMINOTRANSFERASE INCREASED [None]
  - ASCITES [None]
  - ASPARTATE AMINOTRANSFERASE INCREASED [None]
  - BENIGN PANCREATIC NEOPLASM [None]
  - BLOOD ALBUMIN DECREASED [None]
  - BLOOD ALKALINE PHOSPHATASE INCREASED [None]
  - BLOOD CALCIUM DECREASED [None]
  - BLOOD CREATININE INCREASED [None]
  - BLOOD UREA INCREASED [None]
  - C-REACTIVE PROTEIN INCREASED [None]
  - CARDIAC ARREST [None]
  - CONSCIOUSNESS FLUCTUATING [None]
  - GASTROINTESTINAL HAEMORRHAGE [None]
  - GLOMERULAR FILTRATION RATE DECREASED [None]
  - HAEMOGLOBIN DECREASED [None]
  - HEPATIC MASS [None]
  - HYPOTENSION [None]
  - INFECTION [None]
  - LIVER DISORDER [None]
  - LIVER FUNCTION TEST ABNORMAL [None]
  - MALAISE [None]
  - MULTI-ORGAN FAILURE [None]
  - NEPHROTIC SYNDROME [None]
  - NEUTROPHIL COUNT INCREASED [None]
  - OEDEMA PERIPHERAL [None]
  - PLATELET COUNT INCREASED [None]
  - RENAL IMPAIRMENT [None]
  - SALIVARY HYPERSECRETION [None]
  - SEPSIS [None]
  - SURGERY [None]
  - WHITE BLOOD CELL COUNT INCREASED [None]
